FAERS Safety Report 20361199 (Version 1)
Quarter: 2022Q1

REPORT INFORMATION
  Report Type: Spontaneous
  Country: CO (occurrence: CO)
  Receive Date: 20220121
  Receipt Date: 20220121
  Transmission Date: 20220423
  Serious: Yes (Hospitalization, Other)
  Sender: FDA-Public Use
  Company Number: CO-ASTELLAS-2022US001693

PATIENT
  Age: 63 Year
  Sex: Male

DRUGS (9)
  1. TACROLIMUS [Suspect]
     Active Substance: TACROLIMUS
     Indication: Renal transplant
     Dosage: 6 MG, ONCE DAILY (BLOOD LEVELS OF 4 TO 7 NG/ML)
     Route: 065
     Dates: start: 201804, end: 201810
  2. TACROLIMUS [Suspect]
     Active Substance: TACROLIMUS
     Dosage: 5 MG, ONCE DAILY (BLOOD LEVELS OF 4 NG/ML)
     Route: 065
     Dates: start: 201810
  3. TACROLIMUS [Suspect]
     Active Substance: TACROLIMUS
     Route: 065
     Dates: start: 2019
  4. MYCOPHENOLATE MOFETIL [Concomitant]
     Active Substance: MYCOPHENOLATE MOFETIL
     Indication: Renal transplant
     Route: 065
     Dates: start: 201804, end: 201910
  5. MYCOPHENOLATE MOFETIL [Concomitant]
     Active Substance: MYCOPHENOLATE MOFETIL
     Route: 065
     Dates: start: 2019
  6. PREDNISONE [Concomitant]
     Active Substance: PREDNISONE
     Indication: Renal transplant
     Route: 065
     Dates: start: 201804
  7. VALGANCICLOVIR [Concomitant]
     Active Substance: VALGANCICLOVIR
     Indication: Prophylaxis
     Route: 065
     Dates: start: 201804
  8. VALGANCICLOVIR [Concomitant]
     Active Substance: VALGANCICLOVIR
     Dosage: UNK, UNKNOWN FREQ. (FULL DOSE OF VALGANCYCLOVIR, ADJUSTED)
     Route: 065
     Dates: start: 201810
  9. SULFAMETHOXAZOLE AND TRIMETHOPRIM [Concomitant]
     Active Substance: SULFAMETHOXAZOLE\TRIMETHOPRIM
     Indication: Prophylaxis
     Dosage: 160/800 MG, ONCE DAILY
     Route: 065
     Dates: start: 201804

REACTIONS (8)
  - Pathogen resistance [Unknown]
  - Cytomegalovirus gastrointestinal infection [Unknown]
  - Cytomegalovirus hepatitis [Unknown]
  - Diabetes mellitus [Unknown]
  - Disseminated tuberculosis [Unknown]
  - Bone tuberculosis [Unknown]
  - Osteomyelitis bacterial [Unknown]
  - Escherichia infection [Unknown]

NARRATIVE: CASE EVENT DATE: 20181001
